FAERS Safety Report 11696859 (Version 1)
Quarter: 2015Q4

REPORT INFORMATION
  Report Type: Report from Study
  Country: US (occurrence: US)
  Receive Date: 20151104
  Receipt Date: 20151104
  Transmission Date: 20160304
  Serious: Yes (Other)
  Sender: FDA-Public Use
  Company Number: US-PURDUE PHARMA-USA-2015-0126249

PATIENT
  Age: 68 Year
  Sex: Female

DRUGS (3)
  1. OXYCONTIN [Suspect]
     Active Substance: OXYCODONE HYDROCHLORIDE
     Indication: PRODUCT USED FOR UNKNOWN INDICATION
     Dosage: 80 MG, Q12H
     Route: 048
  2. OXYCODONE HCL IR CAPSULES [Concomitant]
     Active Substance: OXYCODONE HYDROCHLORIDE
     Indication: BREAKTHROUGH PAIN
     Dosage: UNK MG, UNK
     Route: 048
  3. OXYCONTIN [Suspect]
     Active Substance: OXYCODONE HYDROCHLORIDE
     Dosage: UNK
     Route: 048
     Dates: start: 201506

REACTIONS (10)
  - Drug withdrawal syndrome [Unknown]
  - Tooth loss [Unknown]
  - Diarrhoea [Unknown]
  - Cardiac operation [Unknown]
  - Toothache [Unknown]
  - Vomiting [Unknown]
  - Memory impairment [Unknown]
  - Malaise [Unknown]
  - Nausea [Unknown]
  - Drug effect decreased [Unknown]

NARRATIVE: CASE EVENT DATE: 20150916
